FAERS Safety Report 18139291 (Version 1)
Quarter: 2020Q3

REPORT INFORMATION
  Report Type: Spontaneous
  Country: US (occurrence: US)
  Receive Date: 20200811
  Receipt Date: 20200811
  Transmission Date: 20201103
  Serious: No
  Sender: FDA-Public Use
  Company Number: None

PATIENT
  Age: 36 Year
  Sex: Female
  Weight: 81.65 kg

DRUGS (4)
  1. ANTIHISTAMINES [Concomitant]
     Active Substance: ANTIHISTAMINES NOS
  2. SKYLA [Suspect]
     Active Substance: LEVONORGESTREL
     Dates: start: 20191219
  3. VITAMIN D [Concomitant]
     Active Substance: VITAMIN D NOS
  4. MULTI?VITAMINS [Concomitant]

REACTIONS (3)
  - Vaginal haemorrhage [None]
  - Dysmenorrhoea [None]
  - Alopecia [None]

NARRATIVE: CASE EVENT DATE: 20200101
